FAERS Safety Report 8352646-6 (Version None)
Quarter: 2012Q2

REPORT INFORMATION
  Report Type: 
  Country: None (occurrence: None)
  Receive Date: 20120509
  Receipt Date: 20120228
  Transmission Date: 20120825
  Serious: Yes (Other)
  Sender: FDA-Public Use
  Company Number: 2012000109

PATIENT
  Age: 46 Year
  Sex: Male
  Weight: 77.1 kg

DRUGS (3)
  1. ACEON [Suspect]
     Indication: HYPERTENSION
     Dosage: 8 MG, QD, ORAL
     Route: 048
     Dates: start: 20120106, end: 20120227
  2. SECTRAL [Concomitant]
  3. TIAZAC [Concomitant]

REACTIONS (2)
  - COUGH [None]
  - BLOOD PRESSURE INADEQUATELY CONTROLLED [None]
